FAERS Safety Report 23363457 (Version 2)
Quarter: 2024Q1

REPORT INFORMATION
  Report Type: Spontaneous
  Country: CA (occurrence: CA)
  Receive Date: 20240103
  Receipt Date: 20240222
  Transmission Date: 20240410
  Serious: Yes (Death)
  Sender: FDA-Public Use
  Company Number: CA-PFIZER INC-PV202200120617

PATIENT
  Age: 37 Year
  Sex: Male

DRUGS (3)
  1. RUXIENCE [Suspect]
     Active Substance: RITUXIMAB-PVVR
     Indication: Immune thrombocytopenia
     Dosage: 375 MG/M2, WEEKLY,1 QUANTITY 1 WEEK , REPEATS 3
  2. RUXIENCE [Suspect]
     Active Substance: RITUXIMAB-PVVR
     Indication: Thrombotic thrombocytopenic purpura
     Dosage: 375 MG/M2, WEEKLY, 4 DOSES
  3. PREDNISONE [Concomitant]
     Active Substance: PREDNISONE
     Dosage: 100 MG

REACTIONS (2)
  - Death [Fatal]
  - Off label use [Unknown]
